FAERS Safety Report 5406183-9 (Version None)
Quarter: 2007Q3

REPORT INFORMATION
  Report Type: 
  Country: None (occurrence: None)
  Receive Date: 20070802
  Receipt Date: 20070802
  Transmission Date: 20080115
  Serious: Yes (Hospitalization)
  Sender: FDA-Public Use
  Company Number: None

PATIENT
  Age: 68 Year
  Sex: Female

DRUGS (10)
  1. LISINOPRIL [Suspect]
     Indication: HYPERTENSION
     Dosage: 5 MG DAILY PO MONTHS PTA
     Route: 048
  2. LIPITOR [Concomitant]
  3. ZOLOFT [Concomitant]
  4. CLONAZEPAM [Concomitant]
  5. ASPIRIN [Concomitant]
  6. COUMADIN [Concomitant]
  7. VITAMIN B-12 [Concomitant]
  8. VITAMIN D [Concomitant]
  9. CALCIUM CHLORIDE [Concomitant]
  10. DIFLUCAN [Concomitant]

REACTIONS (1)
  - ANGIOEDEMA [None]
